FAERS Safety Report 4635160-0 (Version None)
Quarter: 2005Q2

REPORT INFORMATION
  Report Type: 
  Country: None (occurrence: None)
  Receive Date: 20050414
  Receipt Date: 20050404
  Transmission Date: 20051028
  Serious: Yes (Other)
  Sender: FDA-Public Use
  Company Number: JPKYO-S-20040048

PATIENT
  Age: 58 Year
  Sex: Female

DRUGS (9)
  1. NAVELBINE [Suspect]
     Indication: NON-SMALL CELL LUNG CANCER STAGE IV
     Route: 042
     Dates: start: 20000203, end: 20000313
  2. MITOMYCIN [Suspect]
     Indication: NON-SMALL CELL LUNG CANCER STAGE IV
     Route: 042
     Dates: start: 20000203, end: 20000303
  3. CISPLATIN [Suspect]
     Indication: NON-SMALL CELL LUNG CANCER STAGE IV
     Route: 042
     Dates: start: 20000203, end: 20000306
  4. NASEA [Concomitant]
     Dates: start: 20000203, end: 20000310
  5. NASEA [Concomitant]
     Dates: start: 20000310, end: 20000313
  6. PRIMPERAN TAB [Concomitant]
     Dates: start: 20000222, end: 20000312
  7. DECADRON [Concomitant]
     Dates: start: 20000203, end: 20000310
  8. MANNITOL [Concomitant]
     Dates: start: 20000203, end: 20000207
  9. KEITEN [Concomitant]
     Dates: start: 20000216, end: 20000324

REACTIONS (5)
  - BLOOD ALBUMIN DECREASED [None]
  - C-REACTIVE PROTEIN INCREASED [None]
  - NEUTROPHIL COUNT DECREASED [None]
  - PROTEIN TOTAL DECREASED [None]
  - WHITE BLOOD CELL COUNT DECREASED [None]
